FAERS Safety Report 20824255 (Version 1)
Quarter: 2022Q2

REPORT INFORMATION
  Report Type: Report from Study
  Country: US (occurrence: US)
  Receive Date: 20220513
  Receipt Date: 20220513
  Transmission Date: 20220721
  Serious: Yes (Death, Other)
  Sender: FDA-Public Use
  Company Number: US-GILEAD-2022-0580666

PATIENT
  Sex: Female

DRUGS (26)
  1. AZTREONAM LYSINE [Suspect]
     Active Substance: AZTREONAM LYSINE
     Indication: Cystic fibrosis
     Dosage: 1 DOSAGE FORM, BID, RECONSTITUTE W/1ML SUPPLIED DILUENT + NEBULIZE 2 TIMES DAILY EVERYOTHER MONTH.
     Route: 055
  2. AZITHROMYCIN [Concomitant]
     Active Substance: AZITHROMYCIN
  3. FERROUS SULFATE [Concomitant]
     Active Substance: FERROUS SULFATE
  4. VITAMINS\ZINC [Concomitant]
     Active Substance: VITAMINS\ZINC
  5. LYRICA [Concomitant]
     Active Substance: PREGABALIN
  6. PREDNISONE [Concomitant]
     Active Substance: PREDNISONE
  7. TACROLIMUS [Concomitant]
     Active Substance: TACROLIMUS
  8. ACYCLOVIR [Concomitant]
     Active Substance: ACYCLOVIR
  9. SULFAMETHOXAZOLE AND TRIMETHOPRIM [Concomitant]
     Active Substance: SULFAMETHOXAZOLE\TRIMETHOPRIM
  10. PROVENTIL HFA [SALBUTAMOL] [Concomitant]
  11. ASPIRIN [Concomitant]
     Active Substance: ASPIRIN
  12. CALCIUM\CHOLECALCIFEROL [Concomitant]
     Active Substance: CALCIUM\CHOLECALCIFEROL
  13. FOLIC ACID [Concomitant]
     Active Substance: FOLIC ACID
  14. MUCINEX [Concomitant]
     Active Substance: GUAIFENESIN
  15. PANTOPRAZOLE SODIUM [Concomitant]
     Active Substance: PANTOPRAZOLE SODIUM
  16. SERTRALINE HYDROCHLORIDE [Concomitant]
     Active Substance: SERTRALINE HYDROCHLORIDE
  17. HIZENTRA [Concomitant]
     Active Substance: HUMAN IMMUNOGLOBULIN G
  18. ALBUTEROL SULFATE [Concomitant]
     Active Substance: ALBUTEROL SULFATE
  19. METOPROLOL TARTRATE [Concomitant]
     Active Substance: METOPROLOL TARTRATE
  20. ALENDRONATE SODIUM [Concomitant]
     Active Substance: ALENDRONATE SODIUM
  21. TAMBOCOR [Concomitant]
     Active Substance: FLECAINIDE ACETATE
  22. MAGNESIUM OXIDE [Concomitant]
     Active Substance: MAGNESIUM OXIDE
  23. MYFORTIC [Concomitant]
     Active Substance: MYCOPHENOLATE SODIUM
  24. XARELTO [Concomitant]
     Active Substance: RIVAROXABAN
  25. CRESTOR [Concomitant]
     Active Substance: ROSUVASTATIN CALCIUM
  26. PROGRAF [Concomitant]
     Active Substance: TACROLIMUS

REACTIONS (2)
  - Death [Fatal]
  - Off label use [Recovered/Resolved]
